FAERS Safety Report 6102255-4 (Version None)
Quarter: 2009Q1

REPORT INFORMATION
  Report Type: 
  Country: None (occurrence: None)
  Receive Date: 20090304
  Receipt Date: 20090225
  Transmission Date: 20090719
  Serious: Yes (Death)
  Sender: FDA-Public Use
  Company Number: US-GILEAD-2009-0020534

PATIENT
  Sex: Male
  Weight: 73.548 kg

DRUGS (18)
  1. LETAIRIS [Suspect]
     Indication: PULMONARY ARTERIAL HYPERTENSION
     Route: 048
     Dates: start: 20090116
  2. OXYGEN [Concomitant]
  3. VENTAVIS [Concomitant]
  4. COUMADIN [Concomitant]
  5. LASIX [Concomitant]
  6. METOLAZONE [Concomitant]
  7. BENICAR [Concomitant]
  8. COREG CR [Concomitant]
  9. SPIRONOLACTONE [Concomitant]
  10. LANTUS [Concomitant]
  11. INSULIN [Concomitant]
  12. LEVOTHYROXINE SODIUM [Concomitant]
  13. LIPITOR [Concomitant]
  14. ZOCOR [Concomitant]
  15. QUININE SULFATE [Concomitant]
  16. KLOR-CON [Concomitant]
  17. NEXIUM [Concomitant]
  18. MAGNESIUM SULFATE [Concomitant]

REACTIONS (1)
  - DEATH [None]
